FAERS Safety Report 7590462-3 (Version None)
Quarter: 2011Q3

REPORT INFORMATION
  Report Type: 
  Country: None (occurrence: None)
  Receive Date: 20110705
  Receipt Date: 20110616
  Transmission Date: 20111222
  Serious: No
  Sender: FDA-Public Use
  Company Number: US-B.I. PHARMACEUTICALS,INC./RIDGEFIELD-2011-BP-14054BP

PATIENT
  Sex: Female

DRUGS (10)
  1. ASPIRIN [Concomitant]
     Dosage: 81 MG
  2. SIMVASTATIN [Concomitant]
  3. FOLIC ACID [Concomitant]
  4. VITAMIN B-12 [Concomitant]
  5. DILTIAZEM [Concomitant]
  6. MULTI-VITAMIN [Concomitant]
  7. CALCIUM CARBONATE [Concomitant]
  8. PRADAXA [Suspect]
     Indication: ATRIAL FIBRILLATION
     Dosage: 300 MG
     Route: 048
     Dates: start: 20110301, end: 20110603
  9. LISINOPRIL [Concomitant]
  10. ASACOL [Concomitant]

REACTIONS (6)
  - FATIGUE [None]
  - BLOOD TEST ABNORMAL [None]
  - DIZZINESS [None]
  - MEMORY IMPAIRMENT [None]
  - OEDEMA PERIPHERAL [None]
  - OCULAR HYPERAEMIA [None]
